FAERS Safety Report 18011756 (Version 2)
Quarter: 2024Q3

REPORT INFORMATION
  Report Type: Spontaneous
  Country: BE (occurrence: BE)
  Receive Date: 20200713
  Receipt Date: 20240901
  Transmission Date: 20241016
  Serious: Yes (Disabling, Other)
  Sender: PFIZER
  Company Number: BE-PFIZER INC-2020262409

PATIENT
  Age: 48 Year
  Sex: Female

DRUGS (5)
  1. MEDROL [Suspect]
     Active Substance: METHYLPREDNISOLONE
     Indication: Pneumonia viral
     Dosage: 32 MG CO - (1 CO FOR 5 DAYS)
     Dates: start: 20190305, end: 20190309
  2. MEDROL [Suspect]
     Active Substance: METHYLPREDNISOLONE
     Dosage: 1/2 FOR 5 DAYS
     Dates: start: 20190310, end: 20190314
  3. MEDROL [Suspect]
     Active Substance: METHYLPREDNISOLONE
     Dosage: 1/4 FOR 3 DAYS
     Dates: start: 20190315, end: 20190317
  4. AVELOX [Suspect]
     Active Substance: MOXIFLOXACIN HYDROCHLORIDE
     Indication: Pneumonia viral
     Dosage: UNK
     Dates: start: 20190305, end: 20190309
  5. AIMOVIG [Concomitant]
     Active Substance: ERENUMAB-AOOE
     Dosage: 1X PER MONTH PER TREATMENT
     Dates: start: 2020

REACTIONS (9)
  - Muscle rupture [Unknown]
  - Iris atrophy [Unknown]
  - Iris hypopigmentation [Unknown]
  - Iris transillumination defect [Unknown]
  - Arthralgia [Unknown]
  - Tendon pain [Unknown]
  - Negative thoughts [Unknown]
  - Depression [Not Recovered/Not Resolved]
  - Off label use [Unknown]

NARRATIVE: CASE EVENT DATE: 20190101
